FAERS Safety Report 9360726 (Version 2)
Quarter: 2013Q4

REPORT INFORMATION
  Report Type: Spontaneous
  Country: GB (occurrence: None)
  Receive Date: 20130618
  Receipt Date: 20131106
  Transmission Date: 20140711
  Serious: Yes (Hospitalization, Disabling)
  Sender: FDA-Public Use
  Company Number: AUR-APL-2013-04796

PATIENT
  Sex: Female
  Weight: 50.8 kg

DRUGS (13)
  1. CIPROFLOXACIN (CIPROFLOXACIN) [Suspect]
     Indication: LOWER RESPIRATORY TRACT INFECTION
     Dosage: 1000 MG (500 MG, 2 IN 1 D), ORAL
     Dates: start: 20130425, end: 20130503
  2. ASPIRIN (ACETYLSALICYLIC ACID) [Concomitant]
  3. BISOPROLOL [Concomitant]
  4. CO-AMILOFRUSE [Concomitant]
  5. FLECAINIDE (FLECAINIDE) [Concomitant]
  6. LEVOTHYROXINE (LEVOTHYROXINE) [Concomitant]
  7. SERETIDE (SERETIDE) [Concomitant]
  8. ZOPICLONE (ZOPICLONE) [Concomitant]
  9. CETRABEN EMOLLIENT CREAM (PARAFFIN) [Concomitant]
  10. CLENIL MODULITE (BECLOMETASONE DIPROPIONATE) [Concomitant]
  11. IBANDRONIC ACID (IBANDRONIC ACID) [Concomitant]
  12. LOPERAMIDE HYDROCHLORIDE (LOPERAMIDE HYDROCHLORIDE) [Concomitant]
  13. VENTOLIN (SALBUTAMOL) [Concomitant]

REACTIONS (4)
  - Tendonitis [None]
  - Contusion [None]
  - Mobility decreased [None]
  - Overdose [None]
